FAERS Safety Report 7087900-1 (Version None)
Quarter: 2010Q4

REPORT INFORMATION
  Report Type: 
  Country: None (occurrence: None)
  Receive Date: 20101108
  Receipt Date: 20101027
  Transmission Date: 20110411
  Serious: Yes (Other)
  Sender: FDA-Public Use
  Company Number: US-US-EMD SERONO, INC.-7024877

PATIENT
  Sex: Female

DRUGS (4)
  1. REBIF [Suspect]
     Indication: MULTIPLE SCLEROSIS
     Route: 058
     Dates: start: 20080811
  2. ASPIRIN [Concomitant]
     Indication: BLOOD DISORDER
  3. NEURONTIN [Concomitant]
     Indication: PARAESTHESIA
  4. FOLIC ACID [Concomitant]

REACTIONS (4)
  - ANXIETY [None]
  - BRONCHITIS [None]
  - HEADACHE [None]
  - PNEUMONIA [None]
